FAERS Safety Report 8791130 (Version 1)
Quarter: 2012Q4

REPORT INFORMATION
  Report Type: Spontaneous
  Country: US (occurrence: None)
  Receive Date: 20120914
  Receipt Date: 20120914
  Transmission Date: 20130627
  Serious: Yes (Hospitalization)
  Sender: FDA-Public Use
  Company Number: None

PATIENT
  Age: 49 Year
  Sex: Female

DRUGS (2)
  1. RIBAVIRIN [Suspect]
     Route: 048
     Dates: start: 20111228, end: 201208
  2. PEGASYS [Suspect]
     Route: 058
     Dates: start: 20111228, end: 201208

REACTIONS (2)
  - Liver disorder [None]
  - Disorientation [None]
